FAERS Safety Report 13708155 (Version 2)
Quarter: 2017Q3

REPORT INFORMATION
  Report Type: Spontaneous
  Country: US (occurrence: US)
  Receive Date: 20170630
  Receipt Date: 20170821
  Transmission Date: 20171127
  Serious: Yes (Hospitalization)
  Sender: FDA-Public Use
  Company Number: US-TEVA-782523USA

PATIENT
  Age: 8 Year
  Sex: Male

DRUGS (2)
  1. PALIPERIDONE. [Suspect]
     Active Substance: PALIPERIDONE
     Dosage: 3 MILLIGRAM DAILY;
     Route: 065
     Dates: start: 201701
  2. BUPROPION. [Concomitant]
     Active Substance: BUPROPION
     Dosage: 200 MILLIGRAM DAILY;

REACTIONS (4)
  - Underdose [Recovered/Resolved]
  - Aggression [Recovering/Resolving]
  - Irritability [Recovering/Resolving]
  - Drug administered to patient of inappropriate age [Unknown]

NARRATIVE: CASE EVENT DATE: 20170505
